FAERS Safety Report 4994819-6 (Version None)
Quarter: 2006Q2

REPORT INFORMATION
  Report Type: 
  Country: None (occurrence: None)
  Receive Date: 20060508
  Receipt Date: 20060227
  Transmission Date: 20061013
  Serious: Yes (Hospitalization)
  Sender: FDA-Public Use
  Company Number: JP-SP-2006-00539

PATIENT
  Age: 55 Year
  Sex: Male

DRUGS (2)
  1. IMMUCYST [Suspect]
     Indication: CARCINOMA IN SITU OF BLADDER
     Route: 043
     Dates: start: 20060208, end: 20060208
  2. PROPIVERINE HYDROCHLORIDE [Suspect]
     Indication: POLLAKIURIA
     Route: 048
     Dates: start: 20060201, end: 20060209

REACTIONS (1)
  - URINARY RETENTION [None]
